FAERS Safety Report 5826655-2 (Version None)
Quarter: 2008Q3

REPORT INFORMATION
  Report Type: 
  Country: None (occurrence: None)
  Receive Date: 20080725
  Receipt Date: 20080714
  Transmission Date: 20090109
  Serious: Yes (Other)
  Sender: FDA-Public Use
  Company Number: 2008AL007963

PATIENT
  Age: 52 Year
  Sex: Male
  Weight: 124.2856 kg

DRUGS (14)
  1. DIGOXIN [Suspect]
     Indication: ATRIAL FIBRILLATION
     Dosage: 0.125MG, DAILY PO
     Route: 048
     Dates: start: 20050101, end: 20080501
  2. PERCOCET [Concomitant]
  3. HYDROCHLOROTHIAZIDE [Concomitant]
  4. VERAPAMIL [Concomitant]
  5. ASPIRIN [Concomitant]
  6. VALIUM [Concomitant]
  7. PROVIGIL [Concomitant]
  8. MULTI-VITAMIN [Concomitant]
  9. VITAMIN B [Concomitant]
  10. SYNTHROID [Concomitant]
  11. HYDROCODONE BITARTRATE [Concomitant]
  12. LEVOTHYROXINE SODIUM [Concomitant]
  13. ESOMEPRAZOLE MAGNESIUM [Concomitant]
  14. VYTORIN [Concomitant]

REACTIONS (9)
  - DIZZINESS [None]
  - DYSPNOEA [None]
  - FATIGUE [None]
  - HEADACHE [None]
  - HYPOTENSION [None]
  - LOSS OF CONSCIOUSNESS [None]
  - MYOCARDIAL INFARCTION [None]
  - NAUSEA [None]
  - PALPITATIONS [None]
